FAERS Safety Report 23785225 (Version 1)
Quarter: 2024Q2

REPORT INFORMATION
  Report Type: Spontaneous
  Country: US (occurrence: None)
  Receive Date: 20240425
  Receipt Date: 20240425
  Transmission Date: 20240715
  Serious: Yes (Other)
  Sender: FDA-Public Use
  Company Number: 2024A094509

PATIENT
  Age: 75 Year
  Sex: Male

DRUGS (2)
  1. ACALABRUTINIB [Suspect]
     Active Substance: ACALABRUTINIB
     Indication: Mantle cell lymphoma
     Route: 048
  2. VENETOCLAX [Concomitant]
     Active Substance: VENETOCLAX
     Indication: Mantle cell lymphoma

REACTIONS (4)
  - Malignant neoplasm progression [Unknown]
  - Malignant transformation [Unknown]
  - Drug resistance [Unknown]
  - Acquired gene mutation [Unknown]
